FAERS Safety Report 10435184 (Version 2)
Quarter: 2014Q4

REPORT INFORMATION
  Report Type: Spontaneous
  Country: JP (occurrence: JP)
  Receive Date: 20140907
  Receipt Date: 20141111
  Transmission Date: 20150528
  Serious: Yes (Other)
  Sender: FDA-Public Use
  Company Number: PHHY2012JP135876

PATIENT
  Age: 48 Year
  Sex: Female

DRUGS (6)
  1. TASIGNA [Suspect]
     Active Substance: NILOTINIB
     Dosage: 200 MG/ DAY
     Route: 048
     Dates: start: 201211
  2. GLIVEC [Suspect]
     Active Substance: IMATINIB MESYLATE
     Indication: CHRONIC MYELOID LEUKAEMIA
     Dosage: 200 MG/ DAY
     Route: 048
     Dates: end: 20110323
  3. TASIGNA [Suspect]
     Active Substance: NILOTINIB
     Dosage: 400 MG/ DAY
     Route: 048
     Dates: start: 2011
  4. TASIGNA [Suspect]
     Active Substance: NILOTINIB
     Dosage: 400 MG/ DAY, EVERY OTHER DAY
     Route: 048
     Dates: start: 201301, end: 201306
  5. TASIGNA [Suspect]
     Active Substance: NILOTINIB
     Indication: CHRONIC MYELOID LEUKAEMIA
     Dosage: 200 MG/ DAY
     Route: 048
     Dates: start: 20110323
  6. TASIGNA [Suspect]
     Active Substance: NILOTINIB
     Dosage: 200 MG/ DAY
     Route: 048
     Dates: start: 201201, end: 201208

REACTIONS (3)
  - Haemoglobin decreased [Recovered/Resolved]
  - Bone marrow failure [Recovered/Resolved]
  - Neutropenia [Recovered/Resolved]
